FAERS Safety Report 9458153 (Version 1)
Quarter: 2013Q3

REPORT INFORMATION
  Report Type: Spontaneous
  Country: US (occurrence: US)
  Receive Date: 20130814
  Receipt Date: 20130814
  Transmission Date: 20140515
  Serious: No
  Sender: FDA-Public Use
  Company Number: US-PFIZER INC-2013193446

PATIENT
  Age: 24 Year
  Sex: Male

DRUGS (3)
  1. EFFEXOR XR [Suspect]
     Indication: BIPOLAR I DISORDER
     Dosage: 75 MG, 1X/DAY
     Route: 048
     Dates: start: 201204
  2. EFFEXOR XR [Suspect]
     Dosage: 37.5 MG, 1X/DAY
     Route: 048
  3. ABILIFY [Concomitant]
     Dosage: UNK

REACTIONS (3)
  - Off label use [Unknown]
  - Anger [Recovered/Resolved]
  - Irritability [Unknown]
